FAERS Safety Report 4943083-2 (Version None)
Quarter: 2006Q1

REPORT INFORMATION
  Report Type: 
  Country: None (occurrence: None)
  Receive Date: 20060314
  Receipt Date: 20030605
  Transmission Date: 20060701
  Serious: Yes (Disabling)
  Sender: FDA-Public Use
  Company Number: US-MERCK-0306USA00872

PATIENT
  Age: 50 Year
  Sex: Female
  Weight: 73 kg

DRUGS (10)
  1. VIOXX [Suspect]
     Indication: BACK PAIN
     Route: 048
     Dates: start: 20010913, end: 20020628
  2. VIOXX [Suspect]
     Indication: ARTHRALGIA
     Route: 048
     Dates: start: 20010913, end: 20020628
  3. XANAX [Concomitant]
     Route: 048
  4. SOMA [Concomitant]
     Route: 048
  5. PERCOCET [Concomitant]
     Route: 048
  6. NITROGLYCERIN [Concomitant]
     Route: 065
  7. OXYCONTIN [Concomitant]
     Indication: PAIN
     Route: 048
  8. [THERAPY UNSPECIFIED] [Concomitant]
     Route: 065
  9. EXTRA STRENGTH TYLENOL [Concomitant]
     Route: 065
  10. ALEVE [Concomitant]
     Route: 065

REACTIONS (26)
  - ABDOMINAL PAIN [None]
  - ADVERSE EVENT [None]
  - ANXIETY [None]
  - ARRHYTHMIA [None]
  - ARTHRALGIA [None]
  - BACK PAIN [None]
  - BOWEL MOVEMENT IRREGULARITY [None]
  - CHEST PAIN [None]
  - CONSTIPATION [None]
  - COUGH [None]
  - DEPRESSION [None]
  - DYSPEPSIA [None]
  - FACET JOINT SYNDROME [None]
  - GASTROINTESTINAL DISORDER [None]
  - HEADACHE [None]
  - HEPATIC STEATOSIS [None]
  - HYPERTENSION [None]
  - INSOMNIA [None]
  - INTERVERTEBRAL DISC PROTRUSION [None]
  - MYOFASCIAL PAIN SYNDROME [None]
  - NAUSEA [None]
  - SEXUAL DYSFUNCTION [None]
  - STOMACH DISCOMFORT [None]
  - SWELLING [None]
  - TREMOR [None]
  - VOMITING [None]
